FAERS Safety Report 11491719 (Version 1)
Quarter: 2015Q3

REPORT INFORMATION
  Report Type: Spontaneous
  Country: US (occurrence: US)
  Receive Date: 20150910
  Receipt Date: 20150910
  Transmission Date: 20151125
  Serious: Yes (Hospitalization, Other)
  Sender: FDA-Public Use
  Company Number: US-GLAXOSMITHKLINE-US2015GSK129972

PATIENT
  Sex: Female

DRUGS (1)
  1. PROMACTA [Suspect]
     Active Substance: ELTROMBOPAG OLAMINE
     Indication: BREAST CANCER FEMALE
     Dosage: 25 MG, QD
     Dates: start: 20150421

REACTIONS (2)
  - Hospitalisation [Unknown]
  - Drug dose omission [Recovered/Resolved]
